FAERS Safety Report 14628090 (Version 1)
Quarter: 2018Q1

REPORT INFORMATION
  Report Type: Spontaneous
  Country: US (occurrence: US)
  Receive Date: 20180312
  Receipt Date: 20180312
  Transmission Date: 20180509
  Serious: No
  Sender: FDA-Public Use
  Company Number: US-ALLERGAN-1724844US

PATIENT
  Sex: Female

DRUGS (2)
  1. ESTRACE [Suspect]
     Active Substance: ESTRADIOL
     Dosage: UNK
     Route: 067
     Dates: start: 201703, end: 201703
  2. ESTRACE [Suspect]
     Active Substance: ESTRADIOL
     Indication: VULVOVAGINAL DRYNESS
     Dosage: 1 G QD FOR 1 WEEK; THEN 1 G WEEKLY
     Route: 067
     Dates: start: 201611, end: 201701

REACTIONS (2)
  - Vulvovaginal burning sensation [Recovered/Resolved]
  - Vulvovaginal mycotic infection [Recovered/Resolved]
